FAERS Safety Report 8949593 (Version 1)
Quarter: 2012Q4

REPORT INFORMATION
  Report Type: 
  Country: US (occurrence: US)
  Receive Date: 20121206
  Receipt Date: 20121206
  Transmission Date: 20130627
  Serious: Yes (Other)
  Sender: FDA-Public Use
  Company Number: US-SANOFI-AVENTIS-2012SA087968

PATIENT
  Age: 46 Year
  Sex: Male

DRUGS (5)
  1. SULFASALAZINE [Suspect]
     Indication: PSORIATIC ARTHRITIS
     Dosage: upto 3 g daily
     Route: 065
     Dates: start: 2004
  2. LEFLUNOMIDE [Suspect]
     Indication: PSORIATIC ARTHRITIS
     Route: 065
     Dates: start: 2004
  3. METHOTREXATE [Concomitant]
     Indication: SYNOVITIS
  4. FLUDARABINE [Concomitant]
     Indication: NON-HODGKIN^S LYMPHOMA STAGE III
     Dates: start: 2004
  5. RITUXIMAB [Concomitant]
     Dates: start: 2004

REACTIONS (3)
  - Drug ineffective [Unknown]
  - Nausea [Unknown]
  - Dizziness [Unknown]
